FAERS Safety Report 23799500 (Version 1)
Quarter: 2024Q2

REPORT INFORMATION
  Report Type: Spontaneous
  Country: US (occurrence: None)
  Receive Date: 20240428
  Receipt Date: 20240428
  Transmission Date: 20240716
  Serious: No
  Sender: FDA-Public Use
  Company Number: None

PATIENT
  Age: 68 Year
  Sex: Male
  Weight: 87.75 kg

DRUGS (8)
  1. CABENUVA [Suspect]
     Active Substance: CABOTEGRAVIR\RILPIVIRINE
     Indication: HIV infection
     Dosage: OTHER FREQUENCY : 30 DAYS;?
     Dates: start: 20240402, end: 20240428
  2. LAMOTRIGINE [Concomitant]
  3. FAMCICLOVIR [Concomitant]
     Active Substance: FAMCICLOVIR
  4. ATORVASTATIN [Concomitant]
  5. GABAPENTIN [Concomitant]
  6. EZETIMIBE [Concomitant]
     Active Substance: EZETIMIBE
  7. Eleqius [Concomitant]
  8. TYLENOL [Concomitant]

REACTIONS (1)
  - Arthritis [None]

NARRATIVE: CASE EVENT DATE: 20240402
